FAERS Safety Report 4711344-8 (Version None)
Quarter: 2005Q3

REPORT INFORMATION
  Report Type: 
  Country: None (occurrence: None)
  Receive Date: 20050711
  Receipt Date: 20050628
  Transmission Date: 20060218
  Serious: Yes (Hospitalization, Other)
  Sender: FDA-Public Use
  Company Number: 231608K05USA

PATIENT
  Age: 64 Year
  Sex: Female

DRUGS (5)
  1. REBIF [Suspect]
     Indication: MULTIPLE SCLEROSIS
     Dosage: 44 MCG 3 IN 1 WEEKS, SUBCUTANEOUS
     Route: 058
     Dates: start: 20040827, end: 20050201
  2. COMBIVENT [Concomitant]
  3. METFORMIN (METFORMIN) [Concomitant]
  4. ADVAIR DISKUS 100/50 [Concomitant]
  5. AMANTADINE HCL [Concomitant]

REACTIONS (3)
  - GALLBLADDER CANCER [None]
  - HEPATIC NEOPLASM [None]
  - PANCREATIC NEOPLASM [None]
